FAERS Safety Report 9066640 (Version 1)
Quarter: 2013Q1

REPORT INFORMATION
  Report Type: Spontaneous
  Country: US (occurrence: US)
  Receive Date: 20130214
  Receipt Date: 20130214
  Transmission Date: 20140127
  Serious: Yes (Hospitalization)
  Sender: FDA-Public Use
  Company Number: US-ABBOTT-13P-163-1048850-00

PATIENT
  Age: 86 Year
  Sex: Female

DRUGS (1)
  1. DEPAKOTE [Suspect]
     Indication: MIGRAINE
     Dates: start: 20111205

REACTIONS (7)
  - Syncope [Recovered/Resolved]
  - Syncope [Recovered/Resolved]
  - Feeling abnormal [Not Recovered/Not Resolved]
  - Speech disorder [Not Recovered/Not Resolved]
  - Eye pruritus [Not Recovered/Not Resolved]
  - Local swelling [Not Recovered/Not Resolved]
  - Mood swings [Not Recovered/Not Resolved]
